FAERS Safety Report 12635974 (Version 2)
Quarter: 2016Q3

REPORT INFORMATION
  Report Type: Spontaneous
  Country: US (occurrence: US)
  Receive Date: 20160809
  Receipt Date: 20160818
  Transmission Date: 20161109
  Serious: Yes (Hospitalization, Other)
  Sender: FDA-Public Use
  Company Number: US-ASTRAZENECA-2016SE83656

PATIENT
  Sex: Female

DRUGS (4)
  1. TAMOXIFEN [Suspect]
     Active Substance: TAMOXIFEN
     Route: 048
  2. ARIMIDEX [Suspect]
     Active Substance: ANASTROZOLE
     Route: 048
  3. FASLODEX [Suspect]
     Active Substance: FULVESTRANT
     Dosage: TWO SHOTS (ONE ON EACH BUTT) OF 250 EACH EVERY 28 DAYS
     Route: 030
     Dates: start: 20160528
  4. AROMASIN [Concomitant]
     Active Substance: EXEMESTANE
     Route: 048

REACTIONS (2)
  - Drug ineffective [Unknown]
  - Vaginal haemorrhage [Unknown]
